FAERS Safety Report 8947919 (Version 2)
Quarter: 2013Q1

REPORT INFORMATION
  Report Type: Spontaneous
  Country: US (occurrence: None)
  Receive Date: 20121127
  Receipt Date: 20121204
  Transmission Date: 20140127
  Serious: Yes (Other)
  Sender: FDA-Public Use
  Company Number: 2012AP004033

PATIENT
  Age: 23 Year
  Sex: Female

DRUGS (1)
  1. LAMOTRIGINE [Suspect]
     Indication: PRODUCT USED FOR UNKNOWN INDICATION

REACTIONS (7)
  - Drug reaction with eosinophilia and systemic symptoms [None]
  - Pancreatitis acute [None]
  - Hepatitis [None]
  - Pyrexia [None]
  - Pain [None]
  - Nausea [None]
  - Vomiting [None]
